FAERS Safety Report 8837048 (Version 1)
Quarter: 2012Q4

REPORT INFORMATION
  Report Type: Spontaneous
  Country: US (occurrence: None)
  Receive Date: 20121011
  Receipt Date: 20121011
  Transmission Date: 20130627
  Serious: Yes (Hospitalization)
  Sender: FDA-Public Use
  Company Number: None

PATIENT
  Age: 76 Year
  Sex: Male
  Weight: 73.1 kg

DRUGS (1)
  1. FLUORESCEIN [Suspect]
     Indication: IMAGING PROCEDURE
     Dates: start: 20120918, end: 20120918

REACTIONS (8)
  - Chest pain [None]
  - Chest discomfort [None]
  - Dyspnoea [None]
  - Angina pectoris [None]
  - Chest pain [None]
  - Hypoaesthesia [None]
  - Choking [None]
  - Gastrooesophageal reflux disease [None]
